FAERS Safety Report 9202250 (Version 1)
Quarter: 2013Q1

REPORT INFORMATION
  Report Type: Spontaneous
  Country: US (occurrence: None)
  Receive Date: 20130326
  Receipt Date: 20130326
  Transmission Date: 20140127
  Serious: Yes (Other)
  Sender: FDA-Public Use
  Company Number: 2013SA029172

PATIENT
  Sex: Female

DRUGS (1)
  1. ICY HOT [Suspect]
     Indication: BACK PAIN

REACTIONS (2)
  - Application site burn [None]
  - Burns second degree [None]
